FAERS Safety Report 17668395 (Version 2)
Quarter: 2020Q2

REPORT INFORMATION
  Report Type: Report from Study
  Country: None (occurrence: AU)
  Receive Date: 20200414
  Receipt Date: 20200417
  Transmission Date: 20200713
  Serious: Yes (Other)
  Sender: FDA-Public Use
  Company Number: AU-ABBVIE-20K-008-3361747-00

PATIENT
  Age: 65 Year
  Sex: Female

DRUGS (5)
  1. SIFROL [Concomitant]
     Active Substance: PRAMIPEXOLE
     Indication: PARKINSON^S DISEASE
  2. ENDEP [Concomitant]
     Active Substance: AMITRIPTYLINE HYDROCHLORIDE
     Indication: PRODUCT USED FOR UNKNOWN INDICATION
  3. DUODOPA [Suspect]
     Active Substance: CARBIDOPA\LEVODOPA
     Dosage: 1.5MLS
     Route: 050
  4. DUODOPA [Suspect]
     Active Substance: CARBIDOPA\LEVODOPA
     Indication: PARKINSON^S DISEASE
     Dosage: 9.0MLS
     Route: 050
     Dates: start: 20191129
  5. DUODOPA [Suspect]
     Active Substance: CARBIDOPA\LEVODOPA
     Dosage: 2.5MLS
     Route: 050

REACTIONS (15)
  - Foot deformity [Recovering/Resolving]
  - Dyskinesia [Recovering/Resolving]
  - Gait disturbance [Unknown]
  - Movement disorder [Unknown]
  - Paraesthesia [Recovering/Resolving]
  - Myalgia [Unknown]
  - Neuralgia [Unknown]
  - Fall [Recovered/Resolved]
  - Bradykinesia [Unknown]
  - Fall [Recovered/Resolved]
  - Dystonia [Unknown]
  - Syncope [Recovering/Resolving]
  - Mobility decreased [Unknown]
  - Sensitive skin [Recovering/Resolving]
  - Balance disorder [Unknown]

NARRATIVE: CASE EVENT DATE: 202004
